FAERS Safety Report 15954496 (Version 1)
Quarter: 2019Q1

REPORT INFORMATION
  Report Type: Spontaneous
  Country: CA (occurrence: CA)
  Receive Date: 20190213
  Receipt Date: 20190213
  Transmission Date: 20190417
  Serious: Yes (Disabling)
  Sender: FDA-Public Use
  Company Number: CA-009507513-1902CAN002994

PATIENT
  Age: 68 Year
  Sex: Female
  Weight: 79 kg

DRUGS (10)
  1. EZETROL [Suspect]
     Active Substance: EZETIMIBE
     Indication: DIABETES MELLITUS
  2. NAPROXEN. [Concomitant]
     Active Substance: NAPROXEN
     Route: 065
  3. FENOFIBRATE. [Suspect]
     Active Substance: FENOFIBRATE
     Indication: DIABETES MELLITUS
  4. TYLENOL [Concomitant]
     Active Substance: ACETAMINOPHEN
     Route: 065
  5. CANDESARTAN CILEXETIL (+) HYDROCHLOROTHIAZIDE [Suspect]
     Active Substance: CANDESARTAN CILEXETIL\HYDROCHLOROTHIAZIDE
     Indication: HYPERTENSION
     Route: 065
  6. EZETROL [Suspect]
     Active Substance: EZETIMIBE
     Indication: HYPERLIPIDAEMIA
     Route: 065
  7. CANDESARTAN CILEXETIL (+) HYDROCHLOROTHIAZIDE [Suspect]
     Active Substance: CANDESARTAN CILEXETIL\HYDROCHLOROTHIAZIDE
     Indication: DIABETES MELLITUS
  8. RAMIPRIL. [Suspect]
     Active Substance: RAMIPRIL
     Indication: HYPERTENSION
     Route: 065
  9. FENOFIBRATE. [Suspect]
     Active Substance: FENOFIBRATE
     Indication: HYPERLIPIDAEMIA
     Route: 065
  10. ROSUVASTATIN. [Suspect]
     Active Substance: ROSUVASTATIN
     Indication: HYPERLIPIDAEMIA
     Route: 065

REACTIONS (5)
  - Dizziness [Recovered/Resolved]
  - Myalgia [Recovered/Resolved]
  - Abdominal discomfort [Recovered/Resolved]
  - Cognitive disorder [Recovered/Resolved]
  - Malaise [Recovered/Resolved]
